FAERS Safety Report 23011677 (Version 3)
Quarter: 2023Q4

REPORT INFORMATION
  Report Type: Spontaneous
  Country: US (occurrence: US)
  Receive Date: 20230929
  Receipt Date: 20231108
  Transmission Date: 20240110
  Serious: No
  Sender: FDA-Public Use
  Company Number: US-Calliditas-2023CAL01273

PATIENT
  Age: 35 Year
  Sex: Male

DRUGS (3)
  1. TARPEYO [Suspect]
     Active Substance: BUDESONIDE
     Indication: IgA nephropathy
     Dosage: 16 MG (4 MG CAPSULES) ONCE DAILY
     Route: 048
     Dates: start: 20230630
  2. METHIMAZOLE [Concomitant]
     Active Substance: METHIMAZOLE
     Indication: Hyperthyroidism
  3. LISINOPRIL [Concomitant]
     Active Substance: LISINOPRIL

REACTIONS (3)
  - Product residue present [Recovered/Resolved]
  - Acne [Not Recovered/Not Resolved]
  - Haemorrhoids [Recovered/Resolved]

NARRATIVE: CASE EVENT DATE: 20230715
